FAERS Safety Report 18257255 (Version 1)
Quarter: 2020Q3

REPORT INFORMATION
  Report Type: Report from Study
  Country: EG (occurrence: EG)
  Receive Date: 20200911
  Receipt Date: 20200911
  Transmission Date: 20201103
  Serious: Yes (Other)
  Sender: FDA-Public Use
  Company Number: PHHY2019EG181950

PATIENT
  Age: 33 Year
  Sex: Female

DRUGS (13)
  1. AFINITOR [Suspect]
     Active Substance: EVEROLIMUS
     Indication: METASTASES TO BONE
  2. ZOLADEX [Concomitant]
     Active Substance: GOSERELIN ACETATE
     Indication: PRODUCT USED FOR UNKNOWN INDICATION
     Dosage: UNK UNK, QMO
     Route: 065
  3. FEMARA [Suspect]
     Active Substance: LETROZOLE
     Indication: LYMPHOMA
  4. FEMARA [Suspect]
     Active Substance: LETROZOLE
     Indication: METASTASES TO BONE
  5. KISQALI [Suspect]
     Active Substance: RIBOCICLIB
     Indication: METASTASES TO BONE
  6. NOLVADEX [Concomitant]
     Active Substance: TAMOXIFEN CITRATE
     Indication: BREAST CANCER
     Dosage: 1 DF, QD (ONE TABLET DAILY)
     Route: 065
     Dates: start: 2017, end: 201801
  7. KISQALI [Suspect]
     Active Substance: RIBOCICLIB
     Indication: BREAST CANCER METASTATIC
     Dosage: 3 DF, QD (THREE TABLETS AT ONCE DAILY)
     Route: 048
     Dates: start: 201908, end: 202001
  8. AFINITOR [Suspect]
     Active Substance: EVEROLIMUS
     Indication: BREAST CANCER METASTATIC
     Dosage: 1 DF, QD (ONE TABLET DAILY)
     Route: 048
     Dates: start: 201912
  9. AFINITOR [Suspect]
     Active Substance: EVEROLIMUS
     Indication: LYMPHOMA
  10. ZOMETA [Concomitant]
     Active Substance: ZOLEDRONIC ACID
     Indication: PRODUCT USED FOR UNKNOWN INDICATION
     Dosage: UNK UNK, QMO (APPROXEMETELY ONE YEAR)
     Route: 065
  11. FASLODEX [Concomitant]
     Active Substance: FULVESTRANT
     Indication: PRODUCT USED FOR UNKNOWN INDICATION
     Dosage: UNK (1ST MONTH 3 SYRINGE THEN AFTER ONE)
     Route: 065
     Dates: start: 201908
  12. KISQALI [Suspect]
     Active Substance: RIBOCICLIB
     Indication: LYMPHOMA
  13. FEMARA [Suspect]
     Active Substance: LETROZOLE
     Indication: BREAST CANCER
     Dosage: 2.5 MG, QD (ONE TABLET DAILY)
     Route: 048
     Dates: start: 201901, end: 20190802

REACTIONS (7)
  - Metastases to bone [Recovered/Resolved]
  - Tumour marker increased [Not Recovered/Not Resolved]
  - Drug ineffective [Not Recovered/Not Resolved]
  - Metastases to spine [Recovered/Resolved]
  - Metastases to lymph nodes [Not Recovered/Not Resolved]
  - Lymphadenopathy [Recovered/Resolved]
  - Breast cancer recurrent [Recovered/Resolved]

NARRATIVE: CASE EVENT DATE: 20190629
